FAERS Safety Report 25994079 (Version 1)
Quarter: 2025Q4

REPORT INFORMATION
  Report Type: Report from Study
  Country: CN (occurrence: CN)
  Receive Date: 20251104
  Receipt Date: 20251104
  Transmission Date: 20260117
  Serious: Yes (Other)
  Sender: ROCHE
  Company Number: CN-ROCHE-10000396387

PATIENT
  Age: 48 Year
  Sex: Female

DRUGS (23)
  1. KADCYLA [Suspect]
     Active Substance: ADO-TRASTUZUMAB EMTANSINE
     Indication: Breast cancer
     Dosage: SHE RECEIVED MOST RECENT DOSE:11 NOV 2024
     Route: 042
     Dates: start: 20231214
  2. Omeprazole Sodium for Injection [Concomitant]
     Route: 042
     Dates: start: 20240104, end: 20240104
  3. Omeprazole Sodium for Injection [Concomitant]
     Route: 042
     Dates: start: 20231214, end: 20231214
  4. DEXAMETHASONE SODIUM PHOSPHATE [Concomitant]
     Active Substance: DEXAMETHASONE SODIUM PHOSPHATE
     Route: 042
     Dates: start: 20231214, end: 20231214
  5. VITAMIN B6 [Concomitant]
     Active Substance: PYRIDOXINE HYDROCHLORIDE
     Route: 042
     Dates: start: 20241214, end: 20241214
  6. ONDANSETRON HYDROCHLORIDE [Concomitant]
     Active Substance: ONDANSETRON HYDROCHLORIDE
     Route: 042
     Dates: start: 20231214, end: 20231214
  7. Ampicillin Sodium for Injection [Concomitant]
     Route: 042
     Dates: start: 20240125, end: 20240131
  8. Ampicillin Sodium for Injection [Concomitant]
     Route: 042
     Dates: start: 20240218, end: 20240222
  9. Ampicillin Sodium for Injection [Concomitant]
     Route: 042
     Dates: start: 20240602, end: 20240607
  10. Human Erythropoietin [Concomitant]
     Route: 042
     Dates: start: 20240417, end: 20240417
  11. Human Erythropoietin [Concomitant]
     Route: 042
     Dates: start: 20240126, end: 20240126
  12. POTASSIUM CHLORIDE [Concomitant]
     Active Substance: POTASSIUM CHLORIDE
     Route: 042
     Dates: start: 20240219, end: 20240219
  13. POTASSIUM CHLORIDE [Concomitant]
     Active Substance: POTASSIUM CHLORIDE
     Dates: start: 20240510, end: 20240530
  14. POTASSIUM CHLORIDE [Concomitant]
     Active Substance: POTASSIUM CHLORIDE
     Route: 048
     Dates: start: 20240622, end: 20240625
  15. POTASSIUM CHLORIDE [Concomitant]
     Active Substance: POTASSIUM CHLORIDE
     Route: 048
     Dates: start: 20241203, end: 20241206
  16. Human Granulocyte Colony-stimulating Factor Iniection [Concomitant]
     Dosage: DOSE 75 UG
     Route: 058
     Dates: start: 20240416, end: 20240416
  17. Human Granulocyte Colony-stimulating Factor Iniection [Concomitant]
     Dosage: DOSE 75 UG
     Route: 058
     Dates: start: 20240829, end: 20240829
  18. Human Granulocyte Colony-stimulating Factor Iniection [Concomitant]
     Route: 058
     Dates: start: 20240921, end: 20240921
  19. Diammonium Glycyrhizinate Enteric-coated Capsules [Concomitant]
     Route: 048
     Dates: start: 20240510
  20. FuFangZaoFanWan [Concomitant]
     Route: 048
     Dates: start: 20240603
  21. MUPIROCIN [Concomitant]
     Active Substance: MUPIROCIN
     Dosage: END DATE: JUN-2025
     Dates: start: 20240602
  22. Pegylated Recombinant Human Granulocyte [Concomitant]
     Route: 058
     Dates: start: 20240720, end: 20240720
  23. Shengmai injection [Concomitant]

REACTIONS (1)
  - Hypokalaemia [Recovered/Resolved]

NARRATIVE: CASE EVENT DATE: 20241203
